FAERS Safety Report 23015655 (Version 1)
Quarter: 2023Q4

REPORT INFORMATION
  Report Type: Spontaneous
  Country: GB (occurrence: GB)
  Receive Date: 20231002
  Receipt Date: 20231002
  Transmission Date: 20240109
  Serious: Yes (Other)
  Sender: FDA-Public Use
  Company Number: GB-MHRA-MED-202309261033069940-JMHRK

PATIENT
  Age: 34 Year
  Sex: Female

DRUGS (1)
  1. GLATIRAMER [Suspect]
     Active Substance: GLATIRAMER
     Indication: Relapsing multiple sclerosis
     Dosage: 40 MILLIGRAM, Q3W (THREE TIMES A WEEK)
     Route: 065
     Dates: end: 20230728

REACTIONS (1)
  - Breast cancer [Unknown]
